FAERS Safety Report 8962591 (Version 3)
Quarter: 2013Q1

REPORT INFORMATION
  Report Type: Spontaneous
  Country: DE (occurrence: DE)
  Receive Date: 20121214
  Receipt Date: 20130124
  Transmission Date: 20140127
  Serious: Yes (Hospitalization)
  Sender: FDA-Public Use
  Company Number: DE-NOVOPROD-365699

PATIENT
  Age: 41 Year
  Sex: Female
  Weight: 56 kg

DRUGS (1)
  1. LEVEMIR FLEXPEN [Suspect]
     Indication: TYPE 1 DIABETES MELLITUS
     Dosage: 12 IE, BID
     Route: 058
     Dates: start: 200905

REACTIONS (3)
  - Product container issue [Recovered/Resolved]
  - Diabetic ketoacidosis [Recovered/Resolved]
  - Device leakage [Recovered/Resolved]
